FAERS Safety Report 9230556 (Version 1)
Quarter: 2013Q2

REPORT INFORMATION
  Report Type: Spontaneous
  Country: BR (occurrence: BR)
  Receive Date: 20130415
  Receipt Date: 20130415
  Transmission Date: 20140414
  Serious: Yes (Other)
  Sender: FDA-Public Use
  Company Number: BR-PFIZER INC-2013113242

PATIENT
  Sex: Female

DRUGS (2)
  1. PROVERA [Suspect]
     Dosage: 10 MG, 2X/DAY
     Route: 048
  2. PROVERA [Suspect]
     Dosage: 30 MG, 2X/DAY
     Route: 048

REACTIONS (2)
  - Abortion [Unknown]
  - Incorrect dose administered [Unknown]
